FAERS Safety Report 6063963-7 (Version None)
Quarter: 2009Q1

REPORT INFORMATION
  Report Type: 
  Country: None (occurrence: None)
  Receive Date: 20090204
  Receipt Date: 20090204
  Transmission Date: 20090719
  Serious: Yes (Hospitalization)
  Sender: FDA-Public Use
  Company Number: PHEH1999US02414

PATIENT
  Sex: Female
  Weight: 74.8 kg

DRUGS (1)
  1. STARLIX DJN+ [Suspect]
     Dosage: 60MG
     Route: 048
     Dates: start: 19990513, end: 19990604

REACTIONS (1)
  - BREAST CANCER [None]
